FAERS Safety Report 9880012 (Version 3)
Quarter: 2014Q2

REPORT INFORMATION
  Report Type: Spontaneous
  Country: US (occurrence: US)
  Receive Date: 20140207
  Receipt Date: 20140422
  Transmission Date: 20141212
  Serious: No
  Sender: FDA-Public Use
  Company Number: US-009507513-1402USA002399

PATIENT
  Age: 48 Year
  Sex: Female

DRUGS (2)
  1. ZIOPTAN [Suspect]
     Indication: GLAUCOMA
     Dosage: 2 GTT, QD
     Route: 047
     Dates: start: 20140128, end: 20140129
  2. LUMIGAN [Concomitant]
     Indication: GLAUCOMA

REACTIONS (6)
  - Dyspepsia [Recovered/Resolved]
  - Dysphonia [Recovered/Resolved]
  - Sinus disorder [Recovered/Resolved]
  - Sinusitis [Unknown]
  - Sinus headache [Unknown]
  - Headache [Unknown]
